FAERS Safety Report 25518401 (Version 1)
Quarter: 2025Q3

REPORT INFORMATION
  Report Type: Spontaneous
  Country: US (occurrence: US)
  Receive Date: 20250704
  Receipt Date: 20250704
  Transmission Date: 20251021
  Serious: No
  Sender: ASTELLAS
  Company Number: US-ASTELLAS-2025-AER-034456

PATIENT
  Age: 89 Year
  Sex: Male

DRUGS (1)
  1. CRESEMBA [Suspect]
     Active Substance: ISAVUCONAZONIUM SULFATE
     Indication: Infection
     Dosage: 2 X 186 MG (372 MG) ONCE DAILY AT NIGHT
     Route: 065
     Dates: start: 202506

REACTIONS (2)
  - Fatigue [Unknown]
  - Off label use [Unknown]

NARRATIVE: CASE EVENT DATE: 20250601
